FAERS Safety Report 5100798-3 (Version None)
Quarter: 2006Q3

REPORT INFORMATION
  Report Type: 
  Country: None (occurrence: None)
  Receive Date: 20060731
  Receipt Date: 20060616
  Transmission Date: 20061208
  Serious: No
  Sender: FDA-Public Use
  Company Number: 2006PV015760

PATIENT
  Age: 57 Year
  Sex: Female

DRUGS (4)
  1. BYETTA [Suspect]
     Indication: DIABETES MELLITUS NON-INSULIN-DEPENDENT
     Dosage: 5 MCG;BID; SC
     Route: 058
     Dates: start: 20060616
  2. AVANDIA [Concomitant]
  3. GLUCOPHAGE [Concomitant]
  4. PRANDIN [Concomitant]

REACTIONS (3)
  - BLOOD GLUCOSE INCREASED [None]
  - DIZZINESS [None]
  - INJECTION SITE PAIN [None]
